FAERS Safety Report 8567618-6 (Version None)
Quarter: 2012Q3

REPORT INFORMATION
  Report Type: 
  Country: None (occurrence: None)
  Receive Date: 20120803
  Receipt Date: 20120726
  Transmission Date: 20120928
  Serious: Yes (Hospitalization)
  Sender: FDA-Public Use
  Company Number: JP-ELI_LILLY_AND_COMPANY-JP201105006595

PATIENT
  Age: 85 Year
  Sex: Female

DRUGS (2)
  1. FORTEO [Suspect]
     Dosage: UNK
     Route: 058
     Dates: start: 20110501, end: 20110701
  2. FORTEO [Suspect]
     Dosage: UNK
     Route: 058
     Dates: start: 20110510, end: 20110511

REACTIONS (3)
  - FALL [None]
  - SKIN DISCOLOURATION [None]
  - FRACTURE [None]
